FAERS Safety Report 15580914 (Version 1)
Quarter: 2018Q4

REPORT INFORMATION
  Report Type: Spontaneous
  Country: DE (occurrence: DE)
  Receive Date: 20181102
  Receipt Date: 20181102
  Transmission Date: 20190205
  Serious: Yes (Other)
  Sender: FDA-Public Use
  Company Number: DE-JAZZ-2018-DE-015968

PATIENT
  Age: 80 Year

DRUGS (1)
  1. VYXEOS [Suspect]
     Active Substance: CYTARABINE\DAUNORUBICIN
     Indication: ACUTE MYELOID LEUKAEMIA

REACTIONS (7)
  - Rash maculo-papular [Unknown]
  - Aortic stenosis [Unknown]
  - Febrile neutropenia [Unknown]
  - Blindness [Unknown]
  - Device related infection [Unknown]
  - Staphylococcal infection [Unknown]
  - Aspergillus infection [Unknown]
